FAERS Safety Report 11826926 (Version 1)
Quarter: 2015Q4

REPORT INFORMATION
  Report Type: Spontaneous
  Country: IT (occurrence: IT)
  Receive Date: 20151211
  Receipt Date: 20151211
  Transmission Date: 20160305
  Serious: Yes (Other)
  Sender: FDA-Public Use
  Company Number: IT-TEVA-615425ACC

PATIENT
  Age: 74 Year
  Sex: Female

DRUGS (1)
  1. LETROZOLO TEVA - 2,5 MG COMPRESSE RIVESTITE CON FILM [Suspect]
     Active Substance: LETROZOLE
     Indication: BREAST CANCER
     Dosage: 2.5 MILLIGRAM DAILY; 2.5 MG DAILY
     Route: 048
     Dates: start: 20150625, end: 20150628

REACTIONS (1)
  - Rectal haemorrhage [Recovered/Resolved]

NARRATIVE: CASE EVENT DATE: 20150625
